FAERS Safety Report 7601317-X (Version None)
Quarter: 2011Q3

REPORT INFORMATION
  Report Type: 
  Country: None (occurrence: None)
  Receive Date: 20110711
  Receipt Date: 20110627
  Transmission Date: 20111222
  Serious: Yes (Other)
  Sender: FDA-Public Use
  Company Number: IT-GENENTECH-321064

PATIENT
  Age: 8 Month
  Sex: Female

DRUGS (22)
  1. RITUXIMAB [Suspect]
     Indication: EPSTEIN-BARR VIRUS ASSOCIATED LYMPHOPROLIFERATIVE DISORDER
     Dosage: 375 MG/M2, Q4W
     Route: 042
  2. METHOTREXATE [Suspect]
     Dosage: UNK
     Route: 065
  3. METHYLPREDNISOLONE [Suspect]
     Dosage: UNK
     Route: 037
  4. DOXORUBICIN HCL [Suspect]
     Indication: EPSTEIN-BARR VIRUS ASSOCIATED LYMPHOPROLIFERATIVE DISORDER
     Dosage: 30 MG/M2, Q4W
     Route: 042
  5. METHOTREXATE [Suspect]
     Indication: EPSTEIN-BARR VIRUS ASSOCIATED LYMPHOPROLIFERATIVE DISORDER
     Dosage: UNK
     Route: 065
  6. CYTARABINE [Suspect]
     Indication: EPSTEIN-BARR VIRUS ASSOCIATED LYMPHOPROLIFERATIVE DISORDER
     Dosage: UNK
     Route: 065
  7. CYCLOPHOSPHAMIDE [Suspect]
     Indication: EPSTEIN-BARR VIRUS ASSOCIATED LYMPHOPROLIFERATIVE DISORDER
     Dosage: 750 MG/M2, Q4W
     Route: 042
  8. IFOSFAMIDE [Suspect]
     Indication: EPSTEIN-BARR VIRUS ASSOCIATED LYMPHOPROLIFERATIVE DISORDER
     Dosage: UNK
     Route: 065
  9. DAUNORUBICIN HCL [Suspect]
     Indication: EPSTEIN-BARR VIRUS ASSOCIATED LYMPHOPROLIFERATIVE DISORDER
     Dosage: UNK
     Route: 065
  10. VINCRISTINE [Suspect]
     Indication: EPSTEIN-BARR VIRUS ASSOCIATED LYMPHOPROLIFERATIVE DISORDER
     Dosage: 1.5 MG/M2, UNK
     Route: 065
  11. CYTARABINE [Suspect]
     Dosage: UNK
     Route: 065
  12. DEXAMETHASONE [Suspect]
     Dosage: UNK
     Route: 065
  13. FLUDARABINE PHOSPHATE [Suspect]
     Indication: EPSTEIN-BARR VIRUS ASSOCIATED LYMPHOPROLIFERATIVE DISORDER
     Dosage: 30 MG/M2, Q4W
     Route: 042
  14. VINCRISTINE [Suspect]
     Dosage: 1.5 MG/M2, UNK
     Route: 065
  15. ETOPOSIDE [Suspect]
     Indication: EPSTEIN-BARR VIRUS ASSOCIATED LYMPHOPROLIFERATIVE DISORDER
     Dosage: UNK
     Route: 065
  16. DEXAMETHASONE [Suspect]
     Indication: EPSTEIN-BARR VIRUS ASSOCIATED LYMPHOPROLIFERATIVE DISORDER
     Dosage: UNK
     Route: 065
  17. METHYLPREDNISOLONE [Suspect]
     Indication: PROPHYLAXIS
     Dosage: UNK
     Route: 037
  18. CYTARABINE [Suspect]
     Dosage: UNK
     Route: 065
  19. RITUXIMAB [Suspect]
     Dosage: UNK
     Route: 042
  20. CYCLOPHOSPHAMIDE [Suspect]
     Dosage: UNK
     Route: 042
  21. METHOTREXATE [Suspect]
     Dosage: UNK
     Route: 065
  22. METHOTREXATE [Suspect]
     Dosage: UNK
     Route: 065

REACTIONS (2)
  - HAEMATOTOXICITY [None]
  - NEUTROPENIA [None]
